FAERS Safety Report 8494062-2 (Version None)
Quarter: 2012Q3

REPORT INFORMATION
  Report Type: 
  Country: None (occurrence: None)
  Receive Date: 20120709
  Receipt Date: 20120703
  Transmission Date: 20120928
  Serious: Yes (Other)
  Sender: FDA-Public Use
  Company Number: US-AMGEN-USASP2012041300

PATIENT
  Age: 48 Year
  Sex: Female

DRUGS (4)
  1. ENBREL [Suspect]
     Indication: RHEUMATOID ARTHRITIS
     Dosage: 50 MG, 2 TIMES/WK
     Dates: start: 20070701
  2. REMICADE [Concomitant]
  3. ENBREL [Suspect]
     Indication: ANKYLOSING SPONDYLITIS
  4. VICODIN [Concomitant]
     Dosage: UNK

REACTIONS (8)
  - DRUG INEFFECTIVE [None]
  - FATIGUE [None]
  - BRONCHITIS [None]
  - SENSATION OF HEAVINESS [None]
  - HEPATIC ENZYME INCREASED [None]
  - HYPERSENSITIVITY [None]
  - PAIN [None]
  - UPPER RESPIRATORY TRACT INFECTION [None]
